FAERS Safety Report 8036791-0 (Version None)
Quarter: 2012Q1

REPORT INFORMATION
  Report Type: 
  Country: None (occurrence: None)
  Receive Date: 20120111
  Receipt Date: 20120103
  Transmission Date: 20120608
  Serious: Yes (Death, Hospitalization)
  Sender: FDA-Public Use
  Company Number: FR-SANOFI-AVENTIS-2012SA000111

PATIENT
  Age: 68 Year
  Sex: Male
  Weight: 98 kg

DRUGS (9)
  1. GLIMEPIRIDE [Concomitant]
     Route: 048
     Dates: start: 20080101
  2. METFORMIN HCL [Concomitant]
     Route: 048
     Dates: start: 20080101
  3. PREVISCAN [Concomitant]
     Route: 048
     Dates: start: 19980101
  4. CABAZITAXEL [Suspect]
     Indication: PROSTATE CANCER
     Route: 042
     Dates: start: 20111227, end: 20111227
  5. VIT K ANTAGONISTS [Suspect]
  6. PREDNISONE TAB [Suspect]
     Indication: PROSTATE CANCER
     Route: 048
     Dates: start: 20111227, end: 20111228
  7. FUROSEMIDE [Concomitant]
     Route: 048
     Dates: start: 19980101
  8. POTASSIUM CHLORIDE [Concomitant]
     Route: 048
     Dates: start: 19980101
  9. GLICLAZIDE [Concomitant]
     Route: 048
     Dates: start: 20080101

REACTIONS (3)
  - DIABETES MELLITUS [None]
  - CEREBRAL HAEMORRHAGE [None]
  - ERYSIPELAS [None]
